FAERS Safety Report 24529783 (Version 1)
Quarter: 2024Q4

REPORT INFORMATION
  Report Type: Spontaneous
  Country: MY (occurrence: MY)
  Receive Date: 20241021
  Receipt Date: 20241021
  Transmission Date: 20250115
  Serious: Yes (Hospitalization, Other)
  Sender: EPIC PHARM
  Company Number: MY-EPICPHARMA-MY-2024EPCLIT01265

PATIENT
  Age: 68 Year
  Sex: Male

DRUGS (1)
  1. DICLOFENAC SODIUM [Suspect]
     Active Substance: DICLOFENAC SODIUM
     Indication: Renal colic
     Route: 030

REACTIONS (4)
  - Cutaneous vasculitis [Recovered/Resolved]
  - Gangrene [Recovered/Resolved]
  - Cyanosis [Recovered/Resolved]
  - Product use in unapproved indication [Unknown]
